FAERS Safety Report 24657914 (Version 1)
Quarter: 2024Q4

REPORT INFORMATION
  Report Type: Spontaneous
  Country: JP (occurrence: JP)
  Receive Date: 20241125
  Receipt Date: 20241125
  Transmission Date: 20250114
  Serious: Yes (Death, Life-Threatening, Hospitalization, Other)
  Sender: STRIDES
  Company Number: None

PATIENT
  Age: 77 Year
  Sex: Female

DRUGS (1)
  1. PREDNISOLONE [Suspect]
     Active Substance: PREDNISOLONE
     Indication: Neuromyelitis optica spectrum disorder
     Dosage: 15 MILLIGRAM, QD
     Route: 065

REACTIONS (4)
  - Septic shock [Fatal]
  - Bacteraemia [Fatal]
  - Osteoporosis [Unknown]
  - Spinal compression fracture [Unknown]
